FAERS Safety Report 11292120 (Version 3)
Quarter: 2015Q3

REPORT INFORMATION
  Report Type: Spontaneous
  Country: FR (occurrence: FR)
  Receive Date: 20150722
  Receipt Date: 20150806
  Transmission Date: 20151125
  Serious: Yes (Hospitalization)
  Sender: FDA-Public Use
  Company Number: FR-PFIZER INC-2015238951

PATIENT
  Age: 13 Year
  Sex: Female

DRUGS (6)
  1. ZOLOFT [Suspect]
     Active Substance: SERTRALINE HYDROCHLORIDE
     Dosage: 175 MG (7 CAPSULES OF 25 MG), SINGLE
     Route: 048
     Dates: start: 20150117, end: 20150117
  2. ZOLOFT [Suspect]
     Active Substance: SERTRALINE HYDROCHLORIDE
     Dosage: 25 MG, 1X/DAY
     Route: 048
     Dates: start: 20141215, end: 20150116
  3. LYSANXIA [Suspect]
     Active Substance: PRAZEPAM
     Dosage: AROUND 20 DROPS, SINGLE
     Route: 048
     Dates: start: 20150118, end: 20150118
  4. ATARAX [Suspect]
     Active Substance: HYDROXYZINE\HYDROXYZINE HYDROCHLORIDE
     Dosage: 375 MG (15 TABLETS OF 25 MG), SINGLE
     Route: 048
     Dates: start: 20150117, end: 20150117
  5. ATARAX [Suspect]
     Active Substance: HYDROXYZINE\HYDROXYZINE HYDROCHLORIDE
     Dosage: 25 MG, 4X/DAY
     Route: 048
     Dates: start: 20141215, end: 20141223
  6. LYSANXIA [Suspect]
     Active Substance: PRAZEPAM
     Dosage: 15 DROPS, 2X/DAY (MORNING AND EVENING)
     Route: 048

REACTIONS (6)
  - Overdose [Unknown]
  - Vertigo [Unknown]
  - Suicide attempt [Unknown]
  - Somnolence [Recovered/Resolved]
  - Mental impairment [Unknown]
  - Vomiting [Unknown]

NARRATIVE: CASE EVENT DATE: 201501
